FAERS Safety Report 20500301 (Version 1)
Quarter: 2022Q1

REPORT INFORMATION
  Report Type: Spontaneous
  Country: US (occurrence: None)
  Receive Date: 20220218
  Receipt Date: 20220218
  Transmission Date: 20220423
  Serious: Yes (Death)
  Sender: FDA-Public Use
  Company Number: None

PATIENT
  Age: 69 Year
  Sex: Female

DRUGS (8)
  1. OCTREOTIDE [Suspect]
     Active Substance: OCTREOTIDE
     Indication: Diarrhoea
     Dosage: FREQUENCY : DAILY;?
     Route: 058
     Dates: start: 202111, end: 202112
  2. ARANESP [Concomitant]
  3. LISINOPRIL [Concomitant]
     Active Substance: LISINOPRIL
  4. ONDANSETRON [Concomitant]
     Active Substance: ONDANSETRON
  5. Oxycodone/APAP [Concomitant]
  6. PREDNISONE [Concomitant]
  7. PROCHLORPERAZINE [Concomitant]
  8. VIRTUSSIN AC [Concomitant]

REACTIONS (2)
  - Disease progression [None]
  - Disease complication [None]

NARRATIVE: CASE EVENT DATE: 20220217
